FAERS Safety Report 13493432 (Version 10)
Quarter: 2018Q4

REPORT INFORMATION
  Report Type: Report from Study
  Country: US (occurrence: US)
  Receive Date: 20170427
  Receipt Date: 20181113
  Transmission Date: 20190204
  Serious: Yes (Hospitalization, Other)
  Sender: FDA-Public Use
  Company Number: US-ACTELION-A-US2017-153110

PATIENT
  Age: 67 Year
  Sex: Male
  Weight: 123.36 kg

DRUGS (20)
  1. ATORVASTATIN [Concomitant]
     Active Substance: ATORVASTATIN
     Dosage: 40 MG, QPM
  2. POTASSIUM 99 [Concomitant]
  3. SILDENAFIL CITRATE. [Concomitant]
     Active Substance: SILDENAFIL CITRATE
  4. OMEPRAZOLE. [Concomitant]
     Active Substance: OMEPRAZOLE
     Dosage: 40 MG, QD
     Route: 048
  5. ONDANSETRON HCL [Concomitant]
     Active Substance: ONDANSETRON HYDROCHLORIDE
     Dosage: 4 MG, TID
  6. PLAVIX [Concomitant]
     Active Substance: CLOPIDOGREL BISULFATE
     Dosage: 75 MG, QD
     Route: 048
  7. ASPIRIN. [Concomitant]
     Active Substance: ASPIRIN
     Dosage: 325 MG, QD
     Route: 048
  8. FLONASE [Concomitant]
     Active Substance: FLUTICASONE PROPIONATE
  9. TRACLEER [Suspect]
     Active Substance: BOSENTAN
     Indication: PULMONARY ARTERIAL HYPERTENSION
     Dosage: 125 MG, BID
     Route: 048
     Dates: start: 201507
  10. GABAPENTIN. [Concomitant]
     Active Substance: GABAPENTIN
     Dosage: 300 MG, TID
     Route: 048
  11. NITROSTAT [Concomitant]
     Active Substance: NITROGLYCERIN
     Dosage: 0.4 MG,
     Route: 060
  12. PAXIL [Concomitant]
     Active Substance: PAROXETINE HYDROCHLORIDE
     Indication: ANXIETY
     Dosage: 20 MG, QD
  13. SUCRALFATE. [Concomitant]
     Active Substance: SUCRALFATE
     Dosage: 1 GR, QID
     Route: 048
  14. COLACE [Concomitant]
     Active Substance: DOCUSATE SODIUM
     Dosage: 100 MG, BID
  15. CREON [Concomitant]
     Active Substance: PANCRELIPASE AMYLASE\PANCRELIPASE LIPASE\PANCRELIPASE PROTEASE
     Dosage: 24000 - 76000 - 120000UNIT, TAKE 2
  16. NOVOLOG [Concomitant]
     Active Substance: INSULIN ASPART
     Dosage: 100 U/ML, UAD SLIDING SCALE
  17. NOVOLOG [Concomitant]
     Active Substance: INSULIN ASPART
     Dosage: 70-30 FLEXPEN SYRN 100UNK, 40 UNITS IN AM, 42 UNITS IN PM WITH FOOD
  18. LEVOTHYROXINE. [Concomitant]
     Active Substance: LEVOTHYROXINE
  19. BYDUREON [Concomitant]
     Active Substance: EXENATIDE
     Dosage: 2 MG, PEN INJECT MG/0.65 ML, 1 PEN SC ONCE WEEKLY
  20. IRON [Concomitant]
     Active Substance: IRON

REACTIONS (24)
  - Urinary tract infection [Unknown]
  - Loss of consciousness [Unknown]
  - Cardiac failure [Unknown]
  - Ankle fracture [Unknown]
  - Wound infection [Unknown]
  - Syncope [Unknown]
  - Cough [Unknown]
  - Peripheral swelling [Unknown]
  - Wound [Unknown]
  - Arthropod bite [Unknown]
  - Nasopharyngitis [Unknown]
  - Sepsis [Unknown]
  - Pneumonia [Unknown]
  - Fatigue [Unknown]
  - Pain [Unknown]
  - Coronary artery bypass [Unknown]
  - Malaise [Unknown]
  - Product dose omission [Unknown]
  - Leg amputation [Unknown]
  - Chest pain [Unknown]
  - Dyspnoea [Unknown]
  - Skin exfoliation [Unknown]
  - Dizziness [Unknown]
  - Peripheral artery stent insertion [Unknown]

NARRATIVE: CASE EVENT DATE: 201711
